FAERS Safety Report 9057121 (Version 4)
Quarter: 2013Q3

REPORT INFORMATION
  Report Type: Spontaneous
  Country: US (occurrence: US)
  Receive Date: 20130131
  Receipt Date: 20130719
  Transmission Date: 20140515
  Serious: Yes (Other)
  Sender: FDA-Public Use
  Company Number: US-PFIZER INC-2013034952

PATIENT
  Age: 58 Year
  Sex: Female
  Weight: 86 kg

DRUGS (9)
  1. PREMARIN [Suspect]
     Indication: VAGINAL DISORDER
     Dosage: 0.5 MG, 3 TIMES A WEEK
     Route: 067
     Dates: start: 2011
  2. PREMARIN [Interacting]
     Indication: URINARY RETENTION
     Dosage: 0.5 MG, 2X/WEEK
     Route: 067
  3. PREMARIN [Interacting]
     Indication: BLADDER DISORDER
     Dosage: UNK
     Route: 067
  4. EFFEXOR XR [Interacting]
     Indication: DEPRESSION
     Dosage: 150MG MORNING, 75MG NIGHT
  5. LITHIUM [Interacting]
     Indication: DEPRESSION
     Dosage: 300MG MORNING, 600MG NIGHT
  6. KLONOPIN [Concomitant]
     Dosage: 0.5 MG, 1X/DAY
  7. SYNTHROID [Concomitant]
     Dosage: 175 UG, 1X/DAY
  8. ZYPREXA [Concomitant]
     Dosage: 5 MG, 1X/DAY
  9. PRILOSEC [Concomitant]
     Dosage: 20 MG, 1X/DAY

REACTIONS (14)
  - Ovarian cyst [Unknown]
  - Condition aggravated [Unknown]
  - Cholelithiasis [Unknown]
  - Gallbladder disorder [Unknown]
  - Uterine leiomyoma [Not Recovered/Not Resolved]
  - Asthenia [Not Recovered/Not Resolved]
  - Fatigue [Not Recovered/Not Resolved]
  - Breast pain [Not Recovered/Not Resolved]
  - Paraesthesia [Not Recovered/Not Resolved]
  - Breast tenderness [Not Recovered/Not Resolved]
  - Pain in extremity [Not Recovered/Not Resolved]
  - Vulvovaginal pain [Not Recovered/Not Resolved]
  - Vulvovaginal burning sensation [Not Recovered/Not Resolved]
  - Drug interaction [Unknown]
